APPROVED DRUG PRODUCT: KIMIDESS
Active Ingredient: DESOGESTREL; ETHINYL ESTRADIOL
Strength: 0.15MG,N/A;0.02MG,0.01MG
Dosage Form/Route: TABLET;ORAL-28
Application: A076681 | Product #001
Applicant: PH HEALTH LTD
Approved: Apr 30, 2015 | RLD: No | RS: No | Type: DISCN